FAERS Safety Report 11926170 (Version 2)
Quarter: 2016Q1

REPORT INFORMATION
  Report Type: Spontaneous
  Country: DE (occurrence: DE)
  Receive Date: 20160119
  Receipt Date: 20160204
  Transmission Date: 20160526
  Serious: Yes (Hospitalization)
  Sender: FDA-Public Use
  Company Number: DE-WEST-WARD PHARMACEUTICALS CORP.-DE-H14001-16-00113

PATIENT
  Age: 49 Year
  Sex: Male
  Weight: 71 kg

DRUGS (2)
  1. RIBOCARBO-L [Suspect]
     Active Substance: CARBOPLATIN
     Indication: LUNG ADENOCARCINOMA METASTATIC
     Route: 042
     Dates: start: 20151126, end: 20151126
  2. RIBOCARBO-L [Suspect]
     Active Substance: CARBOPLATIN
     Route: 042
     Dates: start: 20151210, end: 20151210

REACTIONS (3)
  - Hypotension [Recovered/Resolved]
  - Enuresis [Recovered/Resolved]
  - Seizure [Recovered/Resolved]

NARRATIVE: CASE EVENT DATE: 20151126
